FAERS Safety Report 23534579 (Version 1)
Quarter: 2024Q1

REPORT INFORMATION
  Report Type: Spontaneous
  Country: US (occurrence: US)
  Receive Date: 20240217
  Receipt Date: 20240217
  Transmission Date: 20240410
  Serious: No
  Sender: FDA-Public Use
  Company Number: US-HORIZON THERAPEUTICS-HZN-2023-010131

PATIENT

DRUGS (1)
  1. TEPEZZA [Suspect]
     Active Substance: TEPROTUMUMAB-TRBW
     Indication: Product used for unknown indication
     Dosage: UNKNOWN INFUSION
     Route: 065
     Dates: start: 202208, end: 202212

REACTIONS (2)
  - Visual impairment [Not Recovered/Not Resolved]
  - Dry eye [Not Recovered/Not Resolved]
